FAERS Safety Report 22286004 (Version 2)
Quarter: 2023Q2

REPORT INFORMATION
  Report Type: Spontaneous
  Country: CA (occurrence: CA)
  Receive Date: 20230505
  Receipt Date: 20230630
  Transmission Date: 20230721
  Serious: Yes (Life-Threatening)
  Sender: FDA-Public Use
  Company Number: CA-AUROBINDO-AUR-APL-2023-033475

PATIENT
  Age: 18 Month
  Sex: Male

DRUGS (39)
  1. ACYCLOVIR [Suspect]
     Active Substance: ACYCLOVIR
     Indication: Systemic candida
     Dosage: UNK
     Route: 065
  2. ACYCLOVIR [Suspect]
     Active Substance: ACYCLOVIR
     Indication: Rhinovirus infection
  3. ACYCLOVIR [Suspect]
     Active Substance: ACYCLOVIR
     Indication: Human bocavirus infection
  4. ACYCLOVIR [Suspect]
     Active Substance: ACYCLOVIR
     Indication: Herpes simplex
  5. ACYCLOVIR [Suspect]
     Active Substance: ACYCLOVIR
     Indication: Epstein-Barr virus infection
  6. ACYCLOVIR [Suspect]
     Active Substance: ACYCLOVIR
     Indication: Cytomegalovirus viraemia
  7. ACYCLOVIR [Suspect]
     Active Substance: ACYCLOVIR
     Indication: Adenovirus infection
  8. CIDOFOVIR [Suspect]
     Active Substance: CIDOFOVIR
     Indication: Systemic candida
     Dosage: UNK
     Route: 061
  9. CIDOFOVIR [Suspect]
     Active Substance: CIDOFOVIR
     Indication: Rhinovirus infection
  10. CIDOFOVIR [Suspect]
     Active Substance: CIDOFOVIR
     Indication: Human bocavirus infection
  11. CIDOFOVIR [Suspect]
     Active Substance: CIDOFOVIR
     Indication: Herpes simplex
  12. CIDOFOVIR [Suspect]
     Active Substance: CIDOFOVIR
     Indication: Epstein-Barr virus infection
  13. CIDOFOVIR [Suspect]
     Active Substance: CIDOFOVIR
     Indication: Cytomegalovirus viraemia
  14. CIDOFOVIR [Suspect]
     Active Substance: CIDOFOVIR
     Indication: Adenovirus infection
  15. CIDOFOVIR [Suspect]
     Active Substance: CIDOFOVIR
     Indication: Systemic candida
     Dosage: UNK
     Route: 065
  16. CIDOFOVIR [Suspect]
     Active Substance: CIDOFOVIR
     Indication: Rhinovirus infection
  17. CIDOFOVIR [Suspect]
     Active Substance: CIDOFOVIR
     Indication: Human bocavirus infection
  18. CIDOFOVIR [Suspect]
     Active Substance: CIDOFOVIR
     Indication: Herpes simplex
  19. CIDOFOVIR [Suspect]
     Active Substance: CIDOFOVIR
     Indication: Epstein-Barr virus infection
  20. CIDOFOVIR [Suspect]
     Active Substance: CIDOFOVIR
     Indication: Cytomegalovirus viraemia
  21. CIDOFOVIR [Suspect]
     Active Substance: CIDOFOVIR
     Indication: Adenovirus infection
  22. FOSCARNET SODIUM [Suspect]
     Active Substance: FOSCARNET SODIUM
     Indication: Systemic candida
     Dosage: UNK
     Route: 065
  23. FOSCARNET SODIUM [Suspect]
     Active Substance: FOSCARNET SODIUM
     Indication: Rhinovirus infection
  24. FOSCARNET SODIUM [Suspect]
     Active Substance: FOSCARNET SODIUM
     Indication: Human bocavirus infection
  25. FOSCARNET SODIUM [Suspect]
     Active Substance: FOSCARNET SODIUM
     Indication: Herpes simplex
  26. FOSCARNET SODIUM [Suspect]
     Active Substance: FOSCARNET SODIUM
     Indication: Epstein-Barr virus infection
  27. FOSCARNET SODIUM [Suspect]
     Active Substance: FOSCARNET SODIUM
     Indication: Cytomegalovirus viraemia
  28. FOSCARNET SODIUM [Suspect]
     Active Substance: FOSCARNET SODIUM
     Indication: Adenovirus infection
  29. GANCICLOVIR [Suspect]
     Active Substance: GANCICLOVIR
     Indication: Systemic candida
     Dosage: UNK
     Route: 065
  30. GANCICLOVIR [Suspect]
     Active Substance: GANCICLOVIR
     Indication: Rhinovirus infection
  31. GANCICLOVIR [Suspect]
     Active Substance: GANCICLOVIR
     Indication: Human bocavirus infection
  32. GANCICLOVIR [Suspect]
     Active Substance: GANCICLOVIR
     Indication: Herpes simplex
  33. GANCICLOVIR [Suspect]
     Active Substance: GANCICLOVIR
     Indication: Epstein-Barr virus infection
  34. GANCICLOVIR [Suspect]
     Active Substance: GANCICLOVIR
     Indication: Cytomegalovirus viraemia
  35. GANCICLOVIR [Suspect]
     Active Substance: GANCICLOVIR
     Indication: Adenovirus infection
  36. DEXAMETHASONE [Concomitant]
     Active Substance: DEXAMETHASONE
     Indication: Haemophagocytic lymphohistiocytosis
     Dosage: UNK
     Route: 065
  37. ETOPOSIDE [Concomitant]
     Active Substance: ETOPOSIDE
     Indication: Haemophagocytic lymphohistiocytosis
     Dosage: UNK
     Route: 065
  38. Immunoglobulin [Concomitant]
     Indication: Haemophagocytic lymphohistiocytosis
     Dosage: UNK
     Route: 042
  39. RITUXIMAB [Concomitant]
     Active Substance: RITUXIMAB
     Indication: Haemophagocytic lymphohistiocytosis
     Dosage: UNK
     Route: 065

REACTIONS (1)
  - Drug ineffective [Unknown]
